FAERS Safety Report 21254674 (Version 1)
Quarter: 2022Q3

REPORT INFORMATION
  Report Type: Spontaneous
  Country: US (occurrence: None)
  Receive Date: 20220824
  Receipt Date: 20220824
  Transmission Date: 20221026
  Serious: No
  Sender: FDA-Public Use
  Company Number: None

PATIENT
  Sex: Female

DRUGS (1)
  1. VERZENIO [Suspect]
     Active Substance: ABEMACICLIB
     Indication: Breast cancer female
     Dosage: FREQUENCY : TWICE A DAY;?
     Route: 048
     Dates: start: 202207

REACTIONS (9)
  - Dyspepsia [None]
  - Palpitations [None]
  - Tachycardia [None]
  - Fatigue [None]
  - Diarrhoea [None]
  - Back pain [None]
  - Hypoaesthesia [None]
  - Paraesthesia [None]
  - Renal disorder [None]
